FAERS Safety Report 4447815-1 (Version None)
Quarter: 2004Q3

REPORT INFORMATION
  Report Type: 
  Country: None (occurrence: None)
  Receive Date: 20040817
  Receipt Date: 20040225
  Transmission Date: 20050211
  Serious: Yes (Hospitalization)
  Sender: FDA-Public Use
  Company Number: MEDI-0001597 (0)

PATIENT
  Age: 1 Month
  Sex: Male
  Weight: 3.4 kg

DRUGS (4)
  1. SYNAGIS [Suspect]
     Indication: ANTIVIRAL PROPHYLAXIS
     Dosage: 53 MG, 1 IN 30 D, INTRA-MUSCULAR; 35 MG, 1 IN 30 D, INTRA-MUSCULAR, 1 IN 30 D, INTRAMUSCULAR
     Route: 030
     Dates: start: 20031107, end: 20031128
  2. SYNAGIS [Suspect]
     Indication: ANTIVIRAL PROPHYLAXIS
     Dosage: 53 MG, 1 IN 30 D, INTRA-MUSCULAR; 35 MG, 1 IN 30 D, INTRA-MUSCULAR, 1 IN 30 D, INTRAMUSCULAR
     Route: 030
     Dates: start: 20031107
  3. SYNAGIS [Suspect]
     Indication: ANTIVIRAL PROPHYLAXIS
     Dosage: 53 MG, 1 IN 30 D, INTRA-MUSCULAR; 35 MG, 1 IN 30 D, INTRA-MUSCULAR, 1 IN 30 D, INTRAMUSCULAR
     Route: 030
     Dates: start: 20040108
  4. POLY-VI-SOL (ERGOCALCIFEROL, ASCORBIC ACID, THIAMINE, RETINOL, RIBOFLA [Concomitant]

REACTIONS (10)
  - APNOEA [None]
  - BRADYCARDIA [None]
  - BRONCHIOLITIS [None]
  - COUGH [None]
  - DEHYDRATION [None]
  - DIET REFUSAL [None]
  - NASAL CONGESTION [None]
  - RESPIRATORY DISTRESS [None]
  - URINE OUTPUT DECREASED [None]
  - VOMITING [None]
